FAERS Safety Report 8223819-8 (Version None)
Quarter: 2012Q1

REPORT INFORMATION
  Report Type: 
  Country: None (occurrence: None)
  Receive Date: 20120321
  Receipt Date: 20120321
  Transmission Date: 20120608
  Serious: Yes (Congenital Anomaly)
  Sender: FDA-Public Use
  Company Number: None

PATIENT
  Age: 32 Year
  Sex: Male
  Weight: 108 kg

DRUGS (2)
  1. ATACAND [Suspect]
  2. ATACAND [Suspect]
     Indication: AORTIC VALVE INCOMPETENCE
     Dosage: 8MG
     Dates: start: 20110101, end: 20120321

REACTIONS (4)
  - MALAISE [None]
  - FATIGUE [None]
  - NEUTROPENIA [None]
  - WHITE BLOOD CELL COUNT DECREASED [None]
